FAERS Safety Report 11554086 (Version 1)
Quarter: 2015Q3

REPORT INFORMATION
  Report Type: Spontaneous
  Country: US (occurrence: US)
  Receive Date: 20150925
  Receipt Date: 20150925
  Transmission Date: 20151125
  Serious: No
  Sender: FDA-Public Use
  Company Number: US-PFIZER INC-2015284524

PATIENT
  Age: 59 Year
  Sex: Female
  Weight: 81 kg

DRUGS (1)
  1. PROTONIX [Suspect]
     Active Substance: PANTOPRAZOLE SODIUM
     Indication: PAIN MANAGEMENT
     Dosage: 40 MG, 2 DAILY

REACTIONS (2)
  - Drug screen positive [Unknown]
  - Product use issue [Unknown]
